FAERS Safety Report 6473422-5 (Version None)
Quarter: 2009Q4

REPORT INFORMATION
  Report Type: 
  Country: None (occurrence: None)
  Receive Date: 20091204
  Receipt Date: 20090331
  Transmission Date: 20100525
  Serious: Yes (Disabling)
  Sender: FDA-Public Use
  Company Number: FR-ELI_LILLY_AND_COMPANY-FR200812001735

PATIENT
  Sex: Male
  Weight: 72 kg

DRUGS (23)
  1. DROTRECOGIN ALFA (ACTIVATED) [Suspect]
     Indication: SEPTIC SHOCK
     Dosage: UNK, UNK
     Route: 042
     Dates: start: 20080720
  2. KARDEGIC /00002703/ [Concomitant]
     Dates: start: 20080719
  3. NORADRENALINE [Concomitant]
     Dates: start: 20080719, end: 20080721
  4. HYPNOVEL [Concomitant]
     Dates: start: 20080718, end: 20080723
  5. SUFENTANIL CITRATE [Concomitant]
     Dates: start: 20080717, end: 20080725
  6. UMULINE [Concomitant]
     Dates: start: 20080708
  7. HYDROCORTISONE [Concomitant]
     Dosage: UNK, UNK
     Dates: start: 20080720, end: 20080725
  8. LASILIX [Concomitant]
     Dates: start: 20080719, end: 20080722
  9. TIENAM [Concomitant]
     Dates: start: 20080720, end: 20080726
  10. TRIFLUCAN [Concomitant]
     Dates: start: 20080713, end: 20080726
  11. ZYVOXID [Concomitant]
     Dates: start: 20080720, end: 20080726
  12. PLAVIX [Concomitant]
  13. PRETERAX [Concomitant]
  14. TANAKAN [Concomitant]
  15. LANSOPRAZOLE [Concomitant]
  16. ARIXTRA [Concomitant]
     Indication: THROMBOSIS PROPHYLAXIS
     Dosage: 2.5 MG, DAILY (1/D)
     Dates: start: 20080724
  17. CONTRAMAL [Concomitant]
     Indication: PAIN
     Dates: start: 20080802
  18. NEXIUM [Concomitant]
     Indication: PROPHYLAXIS
     Dosage: 40 MG, DAILY (1/D)
     Dates: start: 20080731
  19. KARDEGIC [Concomitant]
     Indication: CEREBROVASCULAR ACCIDENT PROPHYLAXIS
     Dates: start: 20080719
  20. LASILIX [Concomitant]
     Indication: OEDEMA
     Dates: start: 20080729, end: 20080802
  21. PERFALGAN [Concomitant]
     Indication: PAIN
     Dates: start: 20080719, end: 20080806
  22. ERYTHROMYCINE                      /00020901/ [Concomitant]
     Indication: INFECTION
     Dates: start: 20080804, end: 20080805
  23. MICROLAX [Concomitant]
     Indication: CONSTIPATION
     Dates: start: 20080806, end: 20080806

REACTIONS (1)
  - HAEMORRHAGE INTRACRANIAL [None]
